FAERS Safety Report 23845007 (Version 1)
Quarter: 2024Q2

REPORT INFORMATION
  Report Type: Spontaneous
  Country: US (occurrence: US)
  Receive Date: 20240511
  Receipt Date: 20240511
  Transmission Date: 20240716
  Serious: No
  Sender: FDA-Public Use
  Company Number: US-ABBVIE-5754551

PATIENT

DRUGS (1)
  1. BOTOX [Suspect]
     Active Substance: ONABOTULINUMTOXINA
     Indication: Product used for unknown indication
     Dosage: TIME INTERVAL: AS NECESSARY
     Route: 065

REACTIONS (7)
  - Thyroid disorder [Unknown]
  - Chest discomfort [Unknown]
  - Feeling abnormal [Unknown]
  - Thyroid mass [Unknown]
  - Fatigue [Unknown]
  - Crying [Unknown]
  - Unevaluable event [Unknown]
